FAERS Safety Report 9031412 (Version 2)
Quarter: 2013Q1

REPORT INFORMATION
  Report Type: Spontaneous
  Country: NL (occurrence: NL)
  Receive Date: 20130124
  Receipt Date: 20130208
  Transmission Date: 20140127
  Serious: Yes (Other)
  Sender: FDA-Public Use
  Company Number: NL-AMGEN-NLDSP2013003468

PATIENT
  Age: 62 Year
  Sex: Male
  Weight: 88 kg

DRUGS (13)
  1. ARANESP [Suspect]
     Indication: PRODUCT USED FOR UNKNOWN INDICATION
     Dosage: 500 MUG, Q3WK
     Route: 058
     Dates: start: 20121025
  2. CABAZITAXEL [Suspect]
     Indication: PROSTATE CANCER
     Dosage: UNK UNK, TID
     Route: 042
     Dates: start: 20121129
  3. PANTOPRAZOLE [Concomitant]
     Dosage: 40 MG, QD
  4. ZOFRAN ZYDIS [Concomitant]
     Dosage: 8 MG, QD
  5. MOVICOLON [Concomitant]
     Dosage: UNK UNK, QD
  6. SELOKEEN                           /00376902/ [Concomitant]
     Dosage: 47.5 MG, QD
  7. ENALAPRIL [Concomitant]
     Dosage: 5 MG, BID
  8. SIMVASTATINE [Concomitant]
     Dosage: 20 MG, QD
  9. CYPROTERONE [Concomitant]
     Dosage: 100 MG, BID
  10. PREDNISOLON                        /00016201/ [Concomitant]
     Dosage: 5 MG, BID
  11. DICLOFENAC [Concomitant]
     Dosage: 50 MG, PRN
  12. PARACETAMOL [Concomitant]
     Dosage: 500 MG, PRN
  13. CHEMOTHERAPEUTICS [Concomitant]
     Dosage: UNK UNK, Q3WK

REACTIONS (1)
  - Thrombosis [Not Recovered/Not Resolved]
